FAERS Safety Report 5755397-7 (Version None)
Quarter: 2008Q2

REPORT INFORMATION
  Report Type: 
  Country: None (occurrence: None)
  Receive Date: 20080529
  Receipt Date: 20080529
  Transmission Date: 20081010
  Serious: No
  Sender: FDA-Public Use
  Company Number: None

PATIENT
  Sex: Male
  Weight: 137.8935 kg

DRUGS (2)
  1. CHANTIX [Suspect]
     Indication: TOBACCO ABUSE
     Dosage: 1/2 TABLET, 1/2 TABLET  QD X 3D, BID X 4D PO
     Route: 048
     Dates: start: 20071227, end: 20080101
  2. CHANTIX [Suspect]
     Indication: TOBACCO ABUSE
     Dosage: 1 TABLET BID PO
     Route: 048
     Dates: start: 20080102, end: 20080416

REACTIONS (6)
  - AFFECTIVE DISORDER [None]
  - DEPRESSION [None]
  - EMOTIONAL DISORDER [None]
  - MENTAL DISORDER [None]
  - NERVOUSNESS [None]
  - SUICIDAL IDEATION [None]
